FAERS Safety Report 6877006-6 (Version None)
Quarter: 2010Q3

REPORT INFORMATION
  Report Type: 
  Country: None (occurrence: None)
  Receive Date: 20100727
  Receipt Date: 20100721
  Transmission Date: 20110219
  Serious: Yes (Death, Hospitalization)
  Sender: FDA-Public Use
  Company Number: IE-ASTRAZENECA-2010SE33950

PATIENT
  Age: 77 Year
  Sex: Male

DRUGS (4)
  1. SEROQUEL [Suspect]
     Indication: AGITATION
     Route: 048
     Dates: start: 20100531, end: 20100704
  2. SINEMET [Concomitant]
     Indication: PARKINSON'S DISEASE
  3. ARICEPT [Concomitant]
     Indication: DEMENTIA ALZHEIMER'S TYPE
  4. NU-SEALS ASPIRIN [Concomitant]

REACTIONS (12)
  - AGITATION [None]
  - CARDIAC ARREST [None]
  - CLOSTRIDIAL INFECTION [None]
  - DYSPHAGIA [None]
  - GAIT DISTURBANCE [None]
  - GENERAL PHYSICAL HEALTH DETERIORATION [None]
  - IRRITABILITY [None]
  - LUNG INFECTION [None]
  - PYREXIA [None]
  - SOMNOLENCE [None]
  - SPEECH DISORDER [None]
  - URINARY TRACT INFECTION [None]
